FAERS Safety Report 9632726 (Version 1)
Quarter: 2013Q4

REPORT INFORMATION
  Report Type: Report from Study
  Country: US (occurrence: US)
  Receive Date: 20131018
  Receipt Date: 20131018
  Transmission Date: 20140711
  Serious: Yes (Other)
  Sender: FDA-Public Use
  Company Number: US-ABBVIE-13P-163-1157325-00

PATIENT
  Sex: Female
  Weight: 101.24 kg

DRUGS (2)
  1. HUMIRA [Suspect]
     Indication: RHEUMATOID ARTHRITIS
     Route: 058
     Dates: start: 2003, end: 2013
  2. HUMIRA [Suspect]
     Route: 058
     Dates: start: 20130905

REACTIONS (9)
  - Benign neoplasm [Recovered/Resolved]
  - Benign breast neoplasm [Recovered/Resolved]
  - Benign neoplasm [Not Recovered/Not Resolved]
  - Postoperative wound infection [Recovering/Resolving]
  - Cough [Unknown]
  - Chills [Unknown]
  - Asthenia [Unknown]
  - Pulmonary mass [Not Recovered/Not Resolved]
  - Erythema [Unknown]
